FAERS Safety Report 8685630 (Version 3)
Quarter: 2012Q4

REPORT INFORMATION
  Report Type: 
  Country: DE (occurrence: DE)
  Receive Date: 20120726
  Receipt Date: 20121112
  Transmission Date: 20130627
  Serious: Yes (Death, Hospitalization)
  Sender: FDA-Public Use
  Company Number: DE-JNJFOC-20120712965

PATIENT
  Age: 67 Year
  Sex: Female
  Weight: 83 kg

DRUGS (7)
  1. XARELTO [Suspect]
     Indication: PULMONARY EMBOLISM
     Dosage: duration of drug administration 18 days
     Route: 048
     Dates: start: 20120125, end: 20120311
  2. CELEBREX [Concomitant]
     Indication: RHEUMATOID ARTHRITIS
     Route: 048
     Dates: start: 2008
  3. PANTOZOL [Concomitant]
     Indication: PROPHYLAXIS
     Route: 048
     Dates: start: 2008
  4. AZULFIDINE [Concomitant]
     Indication: RHEUMATOID ARTHRITIS
     Route: 048
     Dates: start: 2008
  5. ENALAPRIL [Concomitant]
     Indication: HYPERTENSION
     Route: 048
     Dates: start: 2008
  6. NOVAMIN [Concomitant]
     Route: 065
  7. TARGIN [Concomitant]

REACTIONS (4)
  - Multi-organ failure [Fatal]
  - Rheumatoid arthritis [Fatal]
  - Sepsis [Fatal]
  - Dehydration [Fatal]
